FAERS Safety Report 16808647 (Version 1)
Quarter: 2019Q3

REPORT INFORMATION
  Report Type: Spontaneous
  Country: US (occurrence: US)
  Receive Date: 20190724
  Receipt Date: 20190724
  Transmission Date: 20191005
  Serious: No
  Sender: FDA-Public Use
  Company Number: None

PATIENT
  Age: 48 Year
  Sex: Male

DRUGS (17)
  1. BACTRIM [Concomitant]
     Active Substance: SULFAMETHOXAZOLE\TRIMETHOPRIM
  2. PRILOSEC [Concomitant]
     Active Substance: OMEPRAZOLE MAGNESIUM
  3. VENILAFAXINE [Concomitant]
  4. AURYXIA [Concomitant]
     Active Substance: TETRAFERRIC TRICITRATE DECAHYDRATE
  5. PHOSLO [Concomitant]
     Active Substance: CALCIUM ACETATE
  6. TACROLIMUS 1MG CAP [Suspect]
     Active Substance: TACROLIMUS
     Indication: RENAL TRANSPLANT
     Route: 048
     Dates: start: 20181130
  7. FLONASE [Concomitant]
     Active Substance: FLUTICASONE PROPIONATE
  8. LVEOTHYROXINE [Concomitant]
  9. NEURONTIN [Concomitant]
     Active Substance: GABAPENTIN
  10. FENOFIBRATE. [Concomitant]
     Active Substance: FENOFIBRATE
  11. MYFORTIC [Concomitant]
     Active Substance: MYCOPHENOLATE SODIUM
  12. PARICALCITOL. [Concomitant]
     Active Substance: PARICALCITOL
  13. PREDNISONE. [Concomitant]
     Active Substance: PREDNISONE
  14. GABAPENTIN. [Concomitant]
     Active Substance: GABAPENTIN
  15. LIPITOR [Concomitant]
     Active Substance: ATORVASTATIN CALCIUM
  16. METOPROL TAR [Concomitant]
  17. TRAMADOL. [Concomitant]
     Active Substance: TRAMADOL

REACTIONS (2)
  - Dialysis [None]
  - Kidney transplant rejection [None]

NARRATIVE: CASE EVENT DATE: 20190701
